FAERS Safety Report 4992152-X (Version None)
Quarter: 2006Q2

REPORT INFORMATION
  Report Type: 
  Country: None (occurrence: None)
  Receive Date: 20060504
  Receipt Date: 20060425
  Transmission Date: 20061013
  Serious: Yes (Hospitalization)
  Sender: FDA-Public Use
  Company Number: FR-JNJFOC-20060100124

PATIENT
  Sex: Male
  Weight: 72 kg

DRUGS (9)
  1. RISPERDAL CONSTA [Suspect]
     Route: 030
  2. NOZINAN [Concomitant]
  3. NOZINAN [Concomitant]
  4. NOZINAN [Concomitant]
  5. NOZINAN [Concomitant]
  6. NOZINAN [Concomitant]
  7. NOZINAN [Concomitant]
  8. NOZINAN [Concomitant]
     Indication: ANXIETY
  9. XANAX [Concomitant]
     Indication: ANXIETY

REACTIONS (2)
  - AGGRESSION [None]
  - DELUSION [None]
